FAERS Safety Report 23114841 (Version 4)
Quarter: 2023Q4

REPORT INFORMATION
  Report Type: Report from Study
  Country: US (occurrence: US)
  Receive Date: 20231027
  Receipt Date: 20231107
  Transmission Date: 20240109
  Serious: Yes (Other)
  Sender: FDA-Public Use
  Company Number: US-002147023-NVSC2023US227422

PATIENT
  Age: 72 Year
  Sex: Female

DRUGS (6)
  1. TAFINLAR [Suspect]
     Active Substance: DABRAFENIB MESYLATE
     Indication: Non-small cell lung cancer metastatic
     Dosage: UNK UNK, BID
     Route: 048
     Dates: start: 20230926
  2. TAFINLAR [Suspect]
     Active Substance: DABRAFENIB MESYLATE
     Dosage: 150 MG, BID
     Route: 048
  3. TAFINLAR [Suspect]
     Active Substance: DABRAFENIB MESYLATE
     Dosage: 100 MG, BID
     Route: 048
  4. MEKINIST [Suspect]
     Active Substance: TRAMETINIB DIMETHYL SULFOXIDE
     Indication: Non-small cell lung cancer metastatic
     Dosage: UNK UNK, QD
     Route: 048
     Dates: start: 20230926
  5. MEKINIST [Suspect]
     Active Substance: TRAMETINIB DIMETHYL SULFOXIDE
     Dosage: 2 MG, QD
     Route: 048
  6. MEKINIST [Suspect]
     Active Substance: TRAMETINIB DIMETHYL SULFOXIDE
     Dosage: 1.5 MG, QD
     Route: 048

REACTIONS (14)
  - Loss of consciousness [Unknown]
  - Fall [Unknown]
  - Coordination abnormal [Unknown]
  - Dyskinesia [Unknown]
  - Tremor [Unknown]
  - Balance disorder [Unknown]
  - Feeling cold [Unknown]
  - Hot flush [Unknown]
  - Hyperhidrosis [Unknown]
  - Dizziness [Unknown]
  - Fatigue [Unknown]
  - Chills [Unknown]
  - Malaise [Unknown]
  - Pyrexia [Unknown]

NARRATIVE: CASE EVENT DATE: 20231001
